FAERS Safety Report 11064404 (Version 1)
Quarter: 2015Q2

REPORT INFORMATION
  Report Type: Spontaneous
  Country: PT (occurrence: PT)
  Receive Date: 20150424
  Receipt Date: 20150424
  Transmission Date: 20150821
  Serious: Yes (Disabling, Other)
  Sender: FDA-Public Use
  Company Number: PT-ASTRAZENECA-2015SE36866

PATIENT
  Age: 65 Year
  Sex: Female

DRUGS (6)
  1. GINCOBEN [Concomitant]
     Active Substance: GINKGO
     Route: 048
  2. ESOMEPRAZOLE [Concomitant]
     Active Substance: ESOMEPRAZOLE
     Route: 048
  3. CRESTOR [Suspect]
     Active Substance: ROSUVASTATIN CALCIUM
     Indication: HYPERCHOLESTEROLAEMIA
     Route: 048
  4. BROMALEX [Concomitant]
     Indication: ANXIETY
     Route: 048
  5. CATALIP [Suspect]
     Active Substance: FENOFIBRATE
     Indication: BLOOD TRIGLYCERIDES
     Route: 048
  6. ZORIX [Concomitant]
     Indication: DEPRESSION
     Route: 048

REACTIONS (9)
  - Muscle spasms [Unknown]
  - Diarrhoea [Recovered/Resolved]
  - Bone pain [Unknown]
  - Non-cardiac chest pain [Unknown]
  - Migraine [Unknown]
  - Myalgia [Unknown]
  - Pain in extremity [Unknown]
  - Vision blurred [Unknown]
  - Dyspnoea [Unknown]
